FAERS Safety Report 4398087-8 (Version None)
Quarter: 2004Q3

REPORT INFORMATION
  Report Type: 
  Country: None (occurrence: None)
  Receive Date: 20040714
  Receipt Date: 20040714
  Transmission Date: 20050211
  Serious: Yes (Hospitalization)
  Sender: FDA-Public Use
  Company Number: None

PATIENT
  Age: 47 Year
  Sex: Female
  Weight: 72.5755 kg

DRUGS (3)
  1. AUGMENTIN '875' [Suspect]
     Indication: SINUSITIS
     Dosage: 875 MG TWICE DAIL ORAL
     Route: 048
     Dates: start: 20040210, end: 20040302
  2. LEVAQUIN [Concomitant]
  3. ENTEX PSE [Concomitant]

REACTIONS (3)
  - CLOSTRIDIUM COLITIS [None]
  - HYPOTENSION [None]
  - TACHYCARDIA [None]
